FAERS Safety Report 16086015 (Version 1)
Quarter: 2019Q1

REPORT INFORMATION
  Report Type: Spontaneous
  Country: SE (occurrence: SE)
  Receive Date: 20190318
  Receipt Date: 20190318
  Transmission Date: 20190418
  Serious: Yes (Life-Threatening, Hospitalization, Disabling)
  Sender: FDA-Public Use
  Company Number: SE-ESPERO PHARMACEUTICALS-ESP201903-000010

PATIENT
  Age: 74 Year
  Sex: Female
  Weight: 45 kg

DRUGS (22)
  1. ACETYLCYSTEINE. [Suspect]
     Active Substance: ACETYLCYSTEINE
     Indication: INCREASED VISCOSITY OF UPPER RESPIRATORY SECRETION
  2. LEVAXIN [Suspect]
     Active Substance: LEVOTHYROXINE SODIUM
     Indication: HYPOTHYROIDISM
     Dosage: 100 OCH 25 ?G
  3. TRAMADOL. [Suspect]
     Active Substance: TRAMADOL
     Indication: PAIN
  4. OXASCAND [Suspect]
     Active Substance: OXAZEPAM
  5. NATRIUMKLORID [Suspect]
     Active Substance: SODIUM CHLORIDE
  6. ACETYLSALICYLIC ACID [Suspect]
     Active Substance: ASPIRIN
     Indication: PAIN
  7. HALDOL [Suspect]
     Active Substance: HALOPERIDOL
  8. DIMETICONE [Suspect]
     Active Substance: DIMETHICONE
     Indication: FLATULENCE
  9. NITROGLYCERIN. [Suspect]
     Active Substance: NITROGLYCERIN
     Indication: VASODILATATION
  10. HEMINEVRIN [Suspect]
     Active Substance: CLOMETHIAZOLE
     Indication: SLEEP DISORDER
  11. NIFEREX (FERROGLYCINE SULFATE) [Suspect]
     Active Substance: FERROGLYCINE SULFATE
     Indication: MINERAL SUPPLEMENTATION
  12. ISOSORBIDE MONONITRATE. [Suspect]
     Active Substance: ISOSORBIDE MONONITRATE
     Indication: VASODILATATION
  13. PRAMIPEXOLE. [Suspect]
     Active Substance: PRAMIPEXOLE
     Indication: MUSCLE SPASMS
  14. METOPROLOL. [Suspect]
     Active Substance: METOPROLOL
     Indication: HYPERTENSION
  15. HIRUDOID [Suspect]
     Active Substance: GLYCOSAMINOGLYCANS
     Indication: VARICOSE VEIN
  16. ESOMEPRAZOLE. [Suspect]
     Active Substance: ESOMEPRAZOLE MAGNESIUM
  17. ALVEDON [Suspect]
     Active Substance: ACETAMINOPHEN
     Indication: PAIN
  18. ATORVASTATIN [Suspect]
     Active Substance: ATORVASTATIN
     Indication: BLOOD CHOLESTEROL INCREASED
  19. HEMINEVRIN [Suspect]
     Active Substance: CLOMETHIAZOLE
     Indication: ANXIETY
     Dosage: 300 MG, 50 MG
  20. HEMINEVRIN [Suspect]
     Active Substance: CLOMETHIAZOLE
     Indication: CONFUSIONAL STATE
  21. DIAZEMULS NOVUM [Suspect]
     Active Substance: DIAZEPAM
     Indication: ANXIETY
  22. TROMBYL [Suspect]
     Active Substance: ASPIRIN
     Indication: ANTICOAGULANT THERAPY

REACTIONS (4)
  - Muscle atrophy [Unknown]
  - Sedation [Unknown]
  - Chronic fatigue syndrome [Unknown]
  - Toxicity to various agents [Unknown]

NARRATIVE: CASE EVENT DATE: 2013
